FAERS Safety Report 4902036-0 (Version None)
Quarter: 2006Q1

REPORT INFORMATION
  Report Type: 
  Country: None (occurrence: None)
  Receive Date: 20060202
  Receipt Date: 20060120
  Transmission Date: 20060701
  Serious: Yes (Hospitalization, Other)
  Sender: FDA-Public Use
  Company Number: KII-2006-0020877

PATIENT
  Age: 47 Year
  Sex: Female

DRUGS (9)
  1. MORPHINE SULFATE [Suspect]
     Indication: DRUG USE FOR UNKNOWN INDICATION
     Dosage: ORAL
     Route: 048
  2. GLIPIZIDE [Suspect]
     Indication: DRUG USE FOR UNKNOWN INDICATION
     Dosage: ORAL
     Route: 048
  3. ACETAMINOPHEN AND OXYCODONE HCL [Suspect]
     Indication: DRUG USE FOR UNKNOWN INDICATION
     Dosage: ORAL
     Route: 048
  4. SSRI() [Suspect]
     Indication: DRUG USE FOR UNKNOWN INDICATION
     Dosage: ORAL
     Route: 048
  5. FLUPHENAZINE [Suspect]
     Indication: DRUG USE FOR UNKNOWN INDICATION
     Dosage: ORAL
     Route: 048
  6. ZOLPIDEM TARTRATE [Suspect]
     Indication: DRUG USE FOR UNKNOWN INDICATION
     Dosage: ORAL
     Route: 048
  7. VALPROIC ACID [Suspect]
     Indication: DRUG USE FOR UNKNOWN INDICATION
     Dosage: ORAL
     Route: 048
  8. BENZOTROPINE(BENZATROPINE MESILATE) [Suspect]
     Indication: DRUG USE FOR UNKNOWN INDICATION
     Dosage: ORAL
     Route: 048
  9. BENZODIAZEPINE DERIVATIVES() [Suspect]
     Indication: DRUG USE FOR UNKNOWN INDICATION

REACTIONS (6)
  - BLOOD GLUCOSE INCREASED [None]
  - BLOOD SODIUM DECREASED [None]
  - DIARRHOEA [None]
  - HYPOGLYCAEMIA [None]
  - MULTIPLE DRUG OVERDOSE [None]
  - VOMITING [None]
